FAERS Safety Report 10268295 (Version 6)
Quarter: 2015Q2

REPORT INFORMATION
  Report Type: Report from Study
  Country: MX (occurrence: MX)
  Receive Date: 20140630
  Receipt Date: 20150626
  Transmission Date: 20150821
  Serious: Yes (Hospitalization)
  Sender: FDA-Public Use
  Company Number: MX-UCBSA-2014003284

PATIENT
  Age: 63 Year
  Sex: Female
  Weight: 58.5 kg

DRUGS (8)
  1. DEFLAZACORT [Concomitant]
     Active Substance: DEFLAZACORT
     Indication: RHEUMATOID ARTHRITIS
     Dosage: 9 MG, ONCE DAILY (QD)
     Dates: start: 20120809
  2. FOLIC ACID. [Concomitant]
     Active Substance: FOLIC ACID
     Indication: RHEUMATOID ARTHRITIS
     Dosage: 5 MG, ONCE DAILY (QD)
     Route: 048
     Dates: start: 20110506, end: 20140616
  3. METHOTREXATE [Concomitant]
     Active Substance: METHOTREXATE
     Indication: RHEUMATOID ARTHRITIS
     Dosage: 17.5 MG, WEEKLY (QW)
     Route: 048
     Dates: start: 20120809
  4. CALCITRIOL. [Concomitant]
     Active Substance: CALCITRIOL
     Indication: OSTEOPOROSIS
     Dosage: 0.25 ?G, ONCE DAILY (QD)
     Route: 048
     Dates: start: 20110506, end: 20140616
  5. METOPROLOL [Concomitant]
     Active Substance: METOPROLOL
     Indication: ESSENTIAL HYPERTENSION
     Dosage: 100 MG, 2X/DAY (BID)
     Route: 048
     Dates: start: 20130604
  6. LOSARTAN [Concomitant]
     Active Substance: LOSARTAN
     Indication: ESSENTIAL HYPERTENSION
     Dosage: 50 MG, 2X/DAY (BID)
     Route: 048
     Dates: start: 20130408
  7. CERTOLIZUMAB PEGOL RA [Suspect]
     Active Substance: CERTOLIZUMAB PEGOL
     Indication: RHEUMATOID ARTHRITIS
     Dosage: UNK, EV 2 WEEKS(QOW)
     Route: 058
     Dates: start: 20130211, end: 20140506
  8. OMEPRAZOLE. [Concomitant]
     Active Substance: OMEPRAZOLE
     Indication: PROPHYLAXIS AGAINST GASTROINTESTINAL ULCER
     Dosage: 20 MG, ONCE DAILY (QD)
     Route: 048
     Dates: start: 20121112

REACTIONS (1)
  - Pulmonary tuberculosis [Recovered/Resolved]

NARRATIVE: CASE EVENT DATE: 20140603
